FAERS Safety Report 5163773-9 (Version None)
Quarter: 2006Q4

REPORT INFORMATION
  Report Type: 
  Country: None (occurrence: None)
  Receive Date: 20061127
  Receipt Date: 20061127
  Transmission Date: 20070319
  Serious: Yes (Life-Threatening, Hospitalization)
  Sender: FDA-Public Use
  Company Number: None

PATIENT
  Age: 13 Year
  Sex: Female
  Weight: 106 kg

DRUGS (3)
  1. PEGASPARGASE [Suspect]
     Indication: ACUTE LYMPHOCYTIC LEUKAEMIA RECURRENT
     Dosage: 2500 UNITS/M2/DOSE 5 DOSES IM
     Route: 030
     Dates: start: 20060910
  2. PEGASPARGASE [Suspect]
     Indication: ACUTE LYMPHOCYTIC LEUKAEMIA RECURRENT
     Dosage: 2500 UNITS/M2/DOSE 5 DOSES IM
     Route: 030
     Dates: start: 20060915
  3. PEGASPARGASE [Suspect]
     Indication: ACUTE LYMPHOCYTIC LEUKAEMIA RECURRENT
     Dosage: 2500 UNITS/M2/DOSE 5 DOSES IM
     Route: 030
     Dates: start: 20060922

REACTIONS (4)
  - AMMONIA INCREASED [None]
  - COGNITIVE DISORDER [None]
  - DIALYSIS [None]
  - HEPATIC FAILURE [None]
